FAERS Safety Report 7065898-X (Version None)
Quarter: 2010Q4

REPORT INFORMATION
  Report Type: 
  Country: None (occurrence: None)
  Receive Date: 20101027
  Receipt Date: 20101021
  Transmission Date: 20110411
  Serious: Yes (Other)
  Sender: FDA-Public Use
  Company Number: US-ALLERGAN-1013539US

PATIENT
  Age: 33 Year
  Sex: Male

DRUGS (3)
  1. RESTASIS [Suspect]
     Indication: DRY EYE
     Dosage: 1 GTT, BID
     Route: 047
     Dates: start: 20100930, end: 20101020
  2. FOSRENOL [Concomitant]
     Indication: PHOSPHORUS METABOLISM DISORDER
     Dosage: 1 TABLET EVERYTIME I EAT
     Route: 048
  3. UNKNOWN EYE DROP [Concomitant]
     Indication: FOREIGN BODY IN EYE
     Route: 047

REACTIONS (1)
  - HALLUCINATION [None]
